FAERS Safety Report 12156358 (Version 1)
Quarter: 2016Q1

REPORT INFORMATION
  Report Type: Spontaneous
  Country: JP (occurrence: JP)
  Receive Date: 20160307
  Receipt Date: 20160307
  Transmission Date: 20160526
  Serious: Yes (Death, Life-Threatening, Hospitalization, Other)
  Sender: FDA-Public Use
  Company Number: JP-ELI_LILLY_AND_COMPANY-JP201603001184

PATIENT
  Age: 84 Year
  Sex: Male
  Weight: 56 kg

DRUGS (22)
  1. ASPIRIN                            /00002701/ [Suspect]
     Active Substance: ASPIRIN
     Indication: ACUTE MYOCARDIAL INFARCTION
     Dosage: 100 MG, QD
     Route: 048
     Dates: start: 20151224, end: 20160115
  2. ONOACT [Concomitant]
     Active Substance: LANDIOLOL HYDROCHLORIDE
     Dosage: UNK UNK, UNKNOWN
     Route: 065
     Dates: start: 20151229, end: 20160106
  3. DORMICUM                           /00634101/ [Concomitant]
     Active Substance: MIDAZOLAM\MIDAZOLAM HYDROCHLORIDE
     Dosage: UNK UNK, UNKNOWN
     Route: 065
     Dates: start: 20151224, end: 20151230
  4. ZOSYN [Concomitant]
     Active Substance: PIPERACILLIN SODIUM\TAZOBACTAM SODIUM
     Dosage: UNK UNK, UNKNOWN
     Route: 065
     Dates: start: 20151224, end: 20151231
  5. NAFAMOSTAT                         /00903002/ [Concomitant]
     Dosage: UNK, UNKNOWN
     Dates: start: 20160110, end: 20160113
  6. CALCICOL [Concomitant]
     Active Substance: CALCIUM GLUCONATE
     Dosage: UNK UNK, UNKNOWN
     Route: 065
     Dates: start: 20151224
  7. NAFAMOSTAT                         /00903002/ [Concomitant]
     Dosage: UNK UNK, UNKNOWN
     Dates: start: 20151225, end: 20151229
  8. MIYA-BM [Concomitant]
     Active Substance: CLOSTRIDIUM BUTYRICUM SPORES STRAIN M-55
     Dosage: UNK UNK, UNKNOWN
     Route: 065
     Dates: start: 20160105, end: 20160114
  9. EFFORTIL [Concomitant]
     Active Substance: ETILEFRINE HYDROCHLORIDE
     Dosage: UNK UNK, UNKNOWN
     Route: 065
     Dates: start: 20160106, end: 20160107
  10. NOREPINEPHRINE [Concomitant]
     Active Substance: NOREPINEPHRINE\NOREPINEPHRINE BITARTRATE
     Dosage: UNK UNK, UNKNOWN
     Route: 065
     Dates: start: 20151225, end: 20151231
  11. MEROPENEM. [Concomitant]
     Active Substance: MEROPENEM
     Dosage: UNK UNK, UNKNOWN
     Route: 065
     Dates: start: 20160101, end: 20160104
  12. LANSOPRAZOLE. [Suspect]
     Active Substance: LANSOPRAZOLE
     Indication: PROPHYLAXIS AGAINST GASTROINTESTINAL ULCER
     Dosage: 30 MG, QD
     Route: 048
     Dates: start: 20151224, end: 20160109
  13. HEPARIN SODIUM. [Concomitant]
     Active Substance: HEPARIN SODIUM
     Dosage: UNK UNK, UNKNOWN
     Route: 065
     Dates: start: 20151224, end: 20160111
  14. PRECEDEX [Concomitant]
     Active Substance: DEXMEDETOMIDINE HYDROCHLORIDE
     Dosage: UNK UNK, UNKNOWN
     Route: 065
     Dates: start: 20151224, end: 20151230
  15. ZYVOX [Concomitant]
     Active Substance: LINEZOLID
     Dosage: UNK UNK, UNKNOWN
     Route: 065
     Dates: start: 20160104, end: 20160109
  16. BISONO [Concomitant]
     Active Substance: BISOPROLOL
     Dosage: UNK UNK, UNKNOWN
     Route: 065
     Dates: start: 20150115, end: 20160114
  17. PRASUGREL HYDROCHLORIDE [Suspect]
     Active Substance: PRASUGREL HYDROCHLORIDE
     Indication: ACUTE MYOCARDIAL INFARCTION
     Dosage: 3.75 MG, QD
     Route: 048
     Dates: start: 20151224, end: 20160109
  18. DOBUPUM [Concomitant]
     Active Substance: DOBUTAMINE HYDROCHLORIDE
     Dosage: UNK UNK, UNKNOWN
     Route: 065
     Dates: start: 20151225, end: 20160106
  19. HAPTOGLOBIN [Concomitant]
     Dosage: UNK UNK, UNKNOWN
     Route: 065
     Dates: start: 20151224
  20. BICANATE [Concomitant]
     Dosage: UNK UNK, UNKNOWN
     Route: 065
     Dates: start: 20151225, end: 20151228
  21. HUMAN SERUM ALBUMIN [Concomitant]
     Active Substance: ALBUMIN (HUMAN)
     Dosage: UNK UNK, UNKNOWN
     Route: 065
     Dates: start: 20151224
  22. HEPAFILLED [Concomitant]
     Dosage: UNK UNK, UNKNOWN
     Route: 065

REACTIONS (5)
  - Puncture site haemorrhage [Unknown]
  - Haemorrhage [Unknown]
  - Hepatic failure [Fatal]
  - Multiple organ dysfunction syndrome [Unknown]
  - Hypoxic-ischaemic encephalopathy [Unknown]

NARRATIVE: CASE EVENT DATE: 20151227
